FAERS Safety Report 10079123 (Version 1)
Quarter: 2014Q2

REPORT INFORMATION
  Report Type: Spontaneous
  Country: BE (occurrence: BE)
  Receive Date: 20140415
  Receipt Date: 20140415
  Transmission Date: 20141212
  Serious: Yes (Other)
  Sender: FDA-Public Use
  Company Number: PHHY2014BE045147

PATIENT
  Sex: 0

DRUGS (2)
  1. TERBINAFINE [Suspect]
  2. PANDEMRIX [Concomitant]

REACTIONS (1)
  - Anaphylactic shock [Unknown]
